FAERS Safety Report 19151829 (Version 2)
Quarter: 2021Q3

REPORT INFORMATION
  Report Type: Spontaneous
  Country: SG (occurrence: SG)
  Receive Date: 20210419
  Receipt Date: 20210909
  Transmission Date: 20211014
  Serious: Yes (Death)
  Sender: FDA-Public Use
  Company Number: SG-EPICPHARMA-SG-2021EPCLIT00416

PATIENT

DRUGS (2)
  1. 5 FLUOROURACIL [FLUOROURACIL] [Suspect]
     Active Substance: FLUOROURACIL
     Indication: GASTRIC CANCER
     Dosage: GIVEN EVERY  28 D WITH 2 CYCLES GIVEN CONCURRENTLY WITH RADIATION
     Route: 065
  2. LEUCOVORIN CALCIUM. [Suspect]
     Active Substance: LEUCOVORIN CALCIUM
     Indication: GASTRIC CANCER
     Dosage: GIVEN EVERY  28 D WITH 2 CYCLES GIVEN CONCURRENTLY WITH RADIATION
     Route: 065

REACTIONS (2)
  - Sepsis [Fatal]
  - Product use in unapproved indication [Fatal]
